FAERS Safety Report 19140036 (Version 1)
Quarter: 2021Q2

REPORT INFORMATION
  Report Type: Spontaneous
  Country: US (occurrence: US)
  Receive Date: 20210415
  Receipt Date: 20210415
  Transmission Date: 20210717
  Serious: No
  Sender: FDA-Public Use
  Company Number: US-SOMERSET-2021-US-000108

PATIENT
  Age: 82 Year
  Sex: Male

DRUGS (5)
  1. LATANOPROST OPHTHALMIC SOLUTION, 0.005% [Suspect]
     Active Substance: LATANOPROST
     Dates: start: 20210301, end: 20210306
  2. GLIMEPIRIDE. [Concomitant]
     Active Substance: GLIMEPIRIDE
     Route: 048
  3. LEVOTHYROXINE. [Concomitant]
     Active Substance: LEVOTHYROXINE
     Route: 048
  4. DOXAZOSIN 4 MG [Concomitant]
     Active Substance: DOXAZOSIN MESYLATE
     Route: 048
  5. ZETIA [Concomitant]
     Active Substance: EZETIMIBE
     Route: 048

REACTIONS (2)
  - Headache [Recovered/Resolved]
  - Vision blurred [Recovered/Resolved]

NARRATIVE: CASE EVENT DATE: 20210301
